FAERS Safety Report 6088140-5 (Version None)
Quarter: 2009Q1

REPORT INFORMATION
  Report Type: 
  Country: None (occurrence: None)
  Receive Date: 20090224
  Receipt Date: 20090218
  Transmission Date: 20090719
  Serious: Yes (Other)
  Sender: FDA-Public Use
  Company Number: US-RANBAXY-2009US-21249

PATIENT

DRUGS (5)
  1. ISOTRETINOIN [Suspect]
     Indication: ACNE
     Dosage: 20 MG, QD
     Route: 048
     Dates: start: 20080701
  2. ISOTRETINOIN [Suspect]
     Dosage: 120 MG
     Route: 048
     Dates: start: 20080701
  3. CLARAVIS [Suspect]
     Indication: ACNE
     Dosage: 40 MG, UNK
  4. ACCUTANE [Suspect]
     Indication: ACNE
     Dosage: 80 MG, UNK
     Route: 048
  5. ACCUTANE [Suspect]
     Dosage: 100  MG
     Route: 048
     Dates: start: 20080701

REACTIONS (3)
  - LACTATION DISORDER [None]
  - MENSTRUATION IRREGULAR [None]
  - OVARIAN CYST [None]
